FAERS Safety Report 11623159 (Version 1)
Quarter: 2015Q4

REPORT INFORMATION
  Report Type: Spontaneous
  Country: US (occurrence: US)
  Receive Date: 20151013
  Receipt Date: 20151013
  Transmission Date: 20160304
  Serious: No
  Sender: FDA-Public Use
  Company Number: US-JNJFOC-20150213084

PATIENT
  Age: 5 Week
  Sex: Female
  Weight: 4.54 kg

DRUGS (3)
  1. TYLENOL REGULAR STRENGTH [Suspect]
     Active Substance: ACETAMINOPHEN
     Route: 048
  2. TYLENOL REGULAR STRENGTH [Suspect]
     Active Substance: ACETAMINOPHEN
     Indication: EXPOSURE DURING BREAST FEEDING
     Route: 048
     Dates: start: 20150102
  3. INFANTS TYLENOL [Concomitant]
     Active Substance: ACETAMINOPHEN
     Indication: INFLUENZA
     Route: 048
     Dates: start: 20150206, end: 20150208

REACTIONS (1)
  - Exposure during breast feeding [Unknown]
